FAERS Safety Report 12401415 (Version 1)
Quarter: 2016Q2

REPORT INFORMATION
  Report Type: Spontaneous
  Country: NG (occurrence: NG)
  Receive Date: 20160525
  Receipt Date: 20160525
  Transmission Date: 20160815
  Serious: Yes (Other)
  Sender: FDA-Public Use
  Company Number: NG-ROCHE-1762254

PATIENT
  Age: 25 Year
  Sex: Male

DRUGS (1)
  1. AVASTIN [Suspect]
     Active Substance: BEVACIZUMAB
     Indication: RETINOPATHY SICKLE CELL
     Route: 050

REACTIONS (2)
  - Hyphaema [Recovered/Resolved]
  - Off label use [Unknown]
